FAERS Safety Report 4667709-6 (Version None)
Quarter: 2005Q2

REPORT INFORMATION
  Report Type: 
  Country: None (occurrence: None)
  Receive Date: 20050520
  Receipt Date: 20050218
  Transmission Date: 20051028
  Serious: Yes (Hospitalization, Other)
  Sender: FDA-Public Use
  Company Number: PHNU2005DE00996

PATIENT
  Age: 70 Year
  Sex: Female

DRUGS (3)
  1. AREDIA [Suspect]
     Indication: BREAST CANCER METASTATIC
     Dosage: UNK, UNK
     Dates: start: 19990625, end: 20040408
  2. HORMONES [Concomitant]
     Indication: BREAST CANCER METASTATIC
     Route: 065
  3. ASPIRIN [Concomitant]
     Dosage: 100 MG, QD
     Route: 048

REACTIONS (9)
  - ACTINOMYCOSIS [None]
  - BONE DEBRIDEMENT [None]
  - BONE DISORDER [None]
  - JAW DISORDER [None]
  - LOCAL ANAESTHESIA [None]
  - OSTEOMYELITIS [None]
  - OSTEOSCLEROSIS [None]
  - OSTEOTOMY [None]
  - PLASTIC SURGERY [None]
